FAERS Safety Report 10331916 (Version 1)
Quarter: 2014Q3

REPORT INFORMATION
  Report Type: Spontaneous
  Country: CA (occurrence: None)
  Receive Date: 20140711
  Receipt Date: 20140711
  Transmission Date: 20150326
  Serious: Yes (Other)
  Sender: FDA-Public Use
  Company Number: CA-145491

PATIENT
  Age: 28 Year
  Sex: Female

DRUGS (2)
  1. WINRHO SDF LIQUID [Suspect]
     Active Substance: HUMAN RHO(D) IMMUNE GLOBULIN
     Indication: ABORTION THREATENED
     Dosage: NOT OTHERWISE SPECIFIED
     Route: 042
     Dates: start: 20130906, end: 20130906
  2. FOLIC ACID. [Concomitant]
     Active Substance: FOLIC ACID

REACTIONS (12)
  - Diarrhoea [None]
  - Maternal exposure during pregnancy [None]
  - Haemorrhage in pregnancy [None]
  - Foetal placental thrombosis [None]
  - Induced labour [None]
  - Nausea [None]
  - Asthenia [None]
  - Chest discomfort [None]
  - Wrong patient received medication [None]
  - Malaise [None]
  - Premature rupture of membranes [None]
  - Dyspnoea [None]

NARRATIVE: CASE EVENT DATE: 20130906
